FAERS Safety Report 4510027-7 (Version None)
Quarter: 2004Q4

REPORT INFORMATION
  Report Type: 
  Country: None (occurrence: None)
  Receive Date: 20041119
  Receipt Date: 20041115
  Transmission Date: 20050328
  Serious: Yes (Hospitalization)
  Sender: FDA-Public Use
  Company Number: 2004CG00666

PATIENT
  Age: 5 Month
  Sex: Female
  Weight: 7 kg

DRUGS (6)
  1. DIPRIVAN [Suspect]
     Indication: GENERAL ANAESTHESIA
     Dates: start: 20040225, end: 20040225
  2. ULTIVA [Concomitant]
  3. PERFALGAN [Concomitant]
  4. MORPHINE [Concomitant]
  5. ATROPINE [Concomitant]
  6. ANTIBIOTICS [Concomitant]

REACTIONS (8)
  - BLOOD CREATINE PHOSPHOKINASE INCREASED [None]
  - DELAYED RECOVERY FROM ANAESTHESIA [None]
  - DYSPNOEA [None]
  - HYPONATRAEMIA [None]
  - METABOLIC ACIDOSIS [None]
  - NEUROPATHIC PAIN [None]
  - POST PROCEDURAL COMPLICATION [None]
  - TACHYPNOEA [None]
